FAERS Safety Report 6114010-X (Version None)
Quarter: 2009Q1

REPORT INFORMATION
  Report Type: 
  Country: None (occurrence: None)
  Receive Date: 20090312
  Receipt Date: 20081223
  Transmission Date: 20090719
  Serious: No
  Sender: FDA-Public Use
  Company Number: US-ABBOTT-08P-163-0495082-00

PATIENT
  Age: 46 Year
  Sex: Female
  Weight: 106.69 kg

DRUGS (6)
  1. LUPRON DEPOT [Suspect]
     Indication: VAGINAL HAEMORRHAGE
     Route: 030
     Dates: start: 20081021, end: 20081021
  2. LUPRON DEPOT [Suspect]
     Indication: UTERINE ENLARGEMENT
  3. LUPRON DEPOT [Suspect]
     Indication: ABDOMINAL PAIN
  4. LUPRON DEPOT [Suspect]
     Indication: PELVIC PAIN
  5. UNKNOWN IRON SUPPLEMENT [Concomitant]
     Indication: MINERAL SUPPLEMENTATION
     Route: 048
  6. UNKNOWN BLOOD PRESSURE PILL [Concomitant]
     Indication: HYPERTENSION

REACTIONS (1)
  - DRUG INEFFECTIVE [None]
